FAERS Safety Report 12889586 (Version 2)
Quarter: 2016Q4

REPORT INFORMATION
  Report Type: Report from Study
  Country: CO (occurrence: CO)
  Receive Date: 20161027
  Receipt Date: 20161202
  Transmission Date: 20170207
  Serious: Yes (Other)
  Sender: FDA-Public Use
  Company Number: CO-SA-2016SA194359

PATIENT
  Age: 51 Year
  Sex: Female
  Weight: 70 kg

DRUGS (1)
  1. LEMTRADA [Suspect]
     Active Substance: ALEMTUZUMAB
     Indication: MULTIPLE SCLEROSIS
     Route: 042
     Dates: start: 20160115, end: 20160119

REACTIONS (8)
  - Eosinophilia [Not Recovered/Not Resolved]
  - White blood cells urine positive [Unknown]
  - Leukopenia [Not Recovered/Not Resolved]
  - Anaemia [Not Recovered/Not Resolved]
  - Nitrite urine present [Unknown]
  - Lymphopenia [Not Recovered/Not Resolved]
  - Asymptomatic bacteriuria [Not Recovered/Not Resolved]
  - Haematocrit decreased [Unknown]

NARRATIVE: CASE EVENT DATE: 20161014
